FAERS Safety Report 6149897-8 (Version None)
Quarter: 2009Q2

REPORT INFORMATION
  Report Type: 
  Country: None (occurrence: None)
  Receive Date: 20090409
  Receipt Date: 20090402
  Transmission Date: 20091009
  Serious: Yes (Death)
  Sender: FDA-Public Use
  Company Number: AU-PURDUE-USA_2008_0030977

PATIENT
  Age: 58 Year
  Sex: Female

DRUGS (6)
  1. MS CONTIN [Suspect]
     Indication: BACK PAIN
     Dosage: 200 MG, DAILY
     Route: 048
     Dates: start: 20020103, end: 20020101
  2. ANTIDEPRESSANTS [Concomitant]
  3. PANADENE [Concomitant]
  4. TRAMADOL [Concomitant]
  5. PEPCIDINE [Concomitant]
  6. VENTOLIN [Concomitant]

REACTIONS (3)
  - CARDITIS [None]
  - DEATH [None]
  - DRUG TOXICITY [None]
